FAERS Safety Report 10744155 (Version 1)
Quarter: 2015Q1

REPORT INFORMATION
  Report Type: Spontaneous
  Country: US (occurrence: None)
  Receive Date: 20150126
  Receipt Date: 20150126
  Transmission Date: 20150721
  Serious: Yes (Other)
  Sender: FDA-Public Use
  Company Number: None

PATIENT
  Age: 32 Year
  Sex: Female
  Weight: 55.79 kg

DRUGS (1)
  1. FLUCONAZOLE. [Suspect]
     Active Substance: FLUCONAZOLE
     Indication: FUNGAL INFECTION
     Route: 048
     Dates: start: 20150120, end: 20150120

REACTIONS (15)
  - Pain [None]
  - Influenza like illness [None]
  - Feeding disorder [None]
  - Dizziness [None]
  - Drug interaction [None]
  - Fatigue [None]
  - Nausea [None]
  - Headache [None]
  - Abdominal pain upper [None]
  - Movement disorder [None]
  - Dysuria [None]
  - Pyrexia [None]
  - Scleroderma [None]
  - Feeling abnormal [None]
  - Gait disturbance [None]

NARRATIVE: CASE EVENT DATE: 20150120
